FAERS Safety Report 16525191 (Version 1)
Quarter: 2019Q3

REPORT INFORMATION
  Report Type: Spontaneous
  Country: GR (occurrence: GR)
  Receive Date: 20190702
  Receipt Date: 20190702
  Transmission Date: 20191004
  Serious: Yes (Death)
  Sender: FDA-Public Use
  Company Number: PHHY2019GR151927

PATIENT
  Age: 10 Year
  Sex: Male

DRUGS (1)
  1. TRAMETINIB [Suspect]
     Active Substance: TRAMETINIB
     Indication: MALIGNANT MELANOMA
     Route: 065

REACTIONS (4)
  - Neurological decompensation [Fatal]
  - Respiratory disorder [Fatal]
  - Product administered to patient of inappropriate age [Unknown]
  - Melanoma recurrent [Fatal]
